FAERS Safety Report 24184397 (Version 4)
Quarter: 2024Q4

REPORT INFORMATION
  Report Type: Report from Study
  Country: TN (occurrence: TN)
  Receive Date: 20240807
  Receipt Date: 20241125
  Transmission Date: 20250114
  Serious: Yes (Hospitalization)
  Sender: ABBVIE
  Company Number: TN-ABBVIE-5867248

PATIENT
  Age: 26 Year
  Sex: Male

DRUGS (9)
  1. HUMIRA [Suspect]
     Active Substance: ADALIMUMAB
     Indication: Rheumatoid arthritis
     Dosage: FORM STRENGTH: 40 MILLIGRAM
     Route: 058
     Dates: start: 20200131, end: 202005
  2. HUMIRA [Suspect]
     Active Substance: ADALIMUMAB
     Indication: Crohn^s disease
     Dosage: FORM STRENGTH: 40 MILLIGRAM
     Route: 058
     Dates: start: 20170106, end: 201704
  3. HUMIRA [Suspect]
     Active Substance: ADALIMUMAB
     Dosage: 160 MG LOADING DOSE, FORM STRENGTH: 40 MILLIGRAM
     Route: 058
     Dates: start: 20200131, end: 20200131
  4. HUMIRA [Suspect]
     Active Substance: ADALIMUMAB
     Dosage: FORM STRENGTH: 40 MILLIGRAM
     Route: 058
     Dates: start: 202305, end: 202402
  5. HUMIRA [Suspect]
     Active Substance: ADALIMUMAB
     Dosage: FORM STRENGTH: 40 MILLIGRAM
     Route: 058
     Dates: start: 201705, end: 201707
  6. HUMIRA [Suspect]
     Active Substance: ADALIMUMAB
     Dosage: FORM STRENGTH: 40 MILLIGRAM
     Route: 058
     Dates: start: 202402, end: 202403
  7. HUMIRA [Suspect]
     Active Substance: ADALIMUMAB
     Dosage: FORM STRENGTH: 40 MILLIGRAM
     Route: 058
     Dates: start: 202006, end: 20230214
  8. Calperos [Concomitant]
     Indication: Mineral supplementation
     Dosage: 1 TABLET
     Route: 048
     Dates: start: 2010
  9. STEROGYL [Concomitant]
     Active Substance: ERGOCALCIFEROL
     Indication: Nutritional supplementation
     Route: 048
     Dates: start: 2010

REACTIONS (17)
  - Stoma site odour [Recovering/Resolving]
  - Hypotension [Recovered/Resolved]
  - Intestinal obstruction [Recovered/Resolved]
  - Stoma creation [Not Recovered/Not Resolved]
  - Arthritis [Not Recovered/Not Resolved]
  - Arthralgia [Not Recovered/Not Resolved]
  - Hypovitaminosis [Recovered/Resolved]
  - Inflammation [Not Recovered/Not Resolved]
  - Stoma site infection [Recovering/Resolving]
  - Oedema peripheral [Not Recovered/Not Resolved]
  - Gait inability [Not Recovered/Not Resolved]
  - Skin infection [Recovered/Resolved]
  - Stoma closure [Recovered/Resolved]
  - Stoma site reaction [Recovering/Resolving]
  - Pain [Not Recovered/Not Resolved]
  - Arthropathy [Not Recovered/Not Resolved]
  - Movement disorder [Not Recovered/Not Resolved]

NARRATIVE: CASE EVENT DATE: 20240301
